FAERS Safety Report 4950569-3 (Version None)
Quarter: 2006Q1

REPORT INFORMATION
  Report Type: 
  Country: None (occurrence: None)
  Receive Date: 20060321
  Receipt Date: 20060321
  Transmission Date: 20060701
  Serious: Yes (Hospitalization)
  Sender: FDA-Public Use
  Company Number: None

PATIENT
  Age: 59 Year
  Sex: Female
  Weight: 102 kg

DRUGS (20)
  1. DOCETAXEL [Suspect]
     Indication: BREAST CANCER
     Dosage: 9 ROUNDS OF CHEMO
     Dates: start: 20050401
  2. OXYCONTIN [Concomitant]
  3. COSOPT [Concomitant]
  4. FLONASE [Concomitant]
  5. NYSTATIN [Concomitant]
  6. ISORDIL [Concomitant]
  7. PROZAC [Concomitant]
  8. OXYCODONE [Concomitant]
  9. IMODIUM [Concomitant]
  10. AMBIEN [Concomitant]
  11. NORVASC [Concomitant]
  12. LIPITOR [Concomitant]
  13. ZYRTEC [Concomitant]
  14. SYNTHROID [Concomitant]
  15. PREVACID [Concomitant]
  16. ARANESP [Concomitant]
  17. PHENERGAN HCL [Concomitant]
  18. MUPIROCIN [Concomitant]
  19. KEFLEX [Concomitant]
  20. PROCRIT [Concomitant]

REACTIONS (3)
  - DYSPNOEA [None]
  - OEDEMA PERIPHERAL [None]
  - RASH [None]
